FAERS Safety Report 10328405 (Version 2)
Quarter: 2014Q3

REPORT INFORMATION
  Report Type: Spontaneous
  Country: BE (occurrence: BE)
  Receive Date: 20140721
  Receipt Date: 20140725
  Transmission Date: 20150326
  Serious: Yes (Life-Threatening, Hospitalization)
  Sender: FDA-Public Use
  Company Number: BE-ASTRAZENECA-2014SE52559

PATIENT
  Age: 72 Year
  Sex: Male

DRUGS (10)
  1. SIMVASTATINE [Concomitant]
     Active Substance: SIMVASTATIN
  2. METFORMIN [Suspect]
     Active Substance: METFORMIN HYDROCHLORIDE
  3. MOXONIDINE [Concomitant]
     Active Substance: MOXONIDINE
  4. GLIQUIDON [Concomitant]
  5. BISOPROLOL/HYDROCHLOROTHIAZIDE [Concomitant]
     Active Substance: BISOPROLOL FUMARATE\HYDROCHLOROTHIAZIDE
     Dosage: 10/25 MG, DAILY
  6. NIFURTOINOL [Concomitant]
  7. ALLOPURINOL. [Concomitant]
     Active Substance: ALLOPURINOL
  8. HYDROCHLOROTHIAZIDE AND LISINOPRIL [Suspect]
     Active Substance: HYDROCHLOROTHIAZIDE\LISINOPRIL
     Dosage: 20/12.5 MG, DAILY
     Route: 048
  9. WARFARINE [Concomitant]
     Active Substance: WARFARIN
     Dosage: PER INR
  10. DIGOXINE [Concomitant]
     Active Substance: DIGOXIN

REACTIONS (6)
  - Metabolic acidosis [Recovered/Resolved]
  - Tachypnoea [Unknown]
  - Renal failure acute [Recovered/Resolved]
  - Abdominal pain [Recovered/Resolved]
  - Drug-disease interaction [Unknown]
  - Hypotension [Unknown]
